FAERS Safety Report 4841730-7 (Version None)
Quarter: 2005Q4

REPORT INFORMATION
  Report Type: 
  Country: None (occurrence: None)
  Receive Date: 20051130
  Receipt Date: 20051115
  Transmission Date: 20060501
  Serious: Yes (Hospitalization)
  Sender: FDA-Public Use
  Company Number: GBWYE149517NOV05

PATIENT
  Sex: Male

DRUGS (11)
  1. ENBREL [Suspect]
     Indication: RHEUMATOID ARTHRITIS
     Route: 058
     Dates: start: 20050408
  2. SULFASALAZINE [Concomitant]
     Dosage: UNKNOWN
     Route: 065
  3. PREDNISOLONE [Concomitant]
     Dosage: UNKNOWN
     Route: 065
  4. CALCICHEW [Concomitant]
     Dosage: UNKNOWN
     Route: 065
  5. DICLOFENAC [Concomitant]
     Dosage: UNKNOWN
     Route: 065
  6. FERSADAY [Concomitant]
     Dosage: UNKNOWN
     Route: 065
  7. FOSAMAX [Concomitant]
     Dosage: UNKNOWN
     Route: 065
  8. OMEPRAZOLE [Concomitant]
     Dosage: UNKNOWN
     Route: 065
  9. ACETAMINOPHEN [Concomitant]
     Dosage: UNKNOWN
     Route: 065
  10. TAMSULOSIN [Concomitant]
     Dosage: UNKNOWN
     Route: 065
  11. TRAMADOL [Concomitant]
     Dosage: UNKNOWN
     Route: 065

REACTIONS (2)
  - URINARY RETENTION [None]
  - URINARY TRACT INFECTION [None]
